FAERS Safety Report 18086583 (Version 1)
Quarter: 2020Q3

REPORT INFORMATION
  Report Type: Spontaneous
  Country: US (occurrence: US)
  Receive Date: 20200728
  Receipt Date: 20200728
  Transmission Date: 20201103
  Serious: Yes (Disabling)
  Sender: FDA-Public Use
  Company Number: None

PATIENT
  Age: 45 Year
  Sex: Male
  Weight: 83.25 kg

DRUGS (6)
  1. SINGULAIR [Suspect]
     Active Substance: MONTELUKAST SODIUM
     Indication: ASTHMA
     Dosage: ?          QUANTITY:1 TABLET(S);?
     Route: 048
     Dates: start: 20200201, end: 20200726
  2. MULTI VITAMIN [Concomitant]
     Active Substance: VITAMINS
  3. ZMA (ZING, MAGNESIUM ASPARTATE, GLUCOSAMINE CHONDROITIN) [Concomitant]
  4. SINGULAIR [Suspect]
     Active Substance: MONTELUKAST SODIUM
     Indication: HYPERSENSITIVITY
     Dosage: ?          QUANTITY:1 TABLET(S);?
     Route: 048
     Dates: start: 20200201, end: 20200726
  5. DYMISTA [Concomitant]
     Active Substance: AZELASTINE HYDROCHLORIDE\FLUTICASONE PROPIONATE
  6. FIBER [Concomitant]
     Active Substance: PSYLLIUM HUSK

REACTIONS (15)
  - Chills [None]
  - Restlessness [None]
  - Urticaria [None]
  - Influenza like illness [None]
  - Anxiety [None]
  - Abdominal discomfort [None]
  - Cold sweat [None]
  - Sleep disorder [None]
  - Cough [None]
  - Anger [None]
  - Myalgia [None]
  - Depression [None]
  - Diarrhoea [None]
  - Fatigue [None]
  - Pain of skin [None]

NARRATIVE: CASE EVENT DATE: 20200603
